FAERS Safety Report 10030840 (Version 2)
Quarter: 2014Q1

REPORT INFORMATION
  Report Type: Spontaneous
  Country: US (occurrence: US)
  Receive Date: 20140323
  Receipt Date: 20140323
  Transmission Date: 20141002
  Serious: No
  Sender: FDA-Public Use
  Company Number: US-ALLERGAN-1314715US

PATIENT
  Age: 62 Year
  Sex: Female

DRUGS (8)
  1. LATISSE 0.03% [Suspect]
     Indication: GROWTH OF EYELASHES
     Dosage: 2 GTT, UNK
     Route: 061
  2. ANGELIQ [Concomitant]
     Indication: HORMONE REPLACEMENT THERAPY
     Dosage: UNK
  3. MVI [Concomitant]
     Indication: SUPPLEMENTATION THERAPY
     Dosage: UNK
  4. VITAMIN C                          /00008001/ [Concomitant]
     Indication: SUPPLEMENTATION THERAPY
     Dosage: UNK
  5. VITAMIN D                          /00107901/ [Concomitant]
     Indication: SUPPLEMENTATION THERAPY
     Dosage: UNK
  6. VITAMIN B COMPLEX [Concomitant]
     Indication: SUPPLEMENTATION THERAPY
     Dosage: UNK
  7. FISH OIL [Concomitant]
     Indication: SUPPLEMENTATION THERAPY
     Dosage: UNK
  8. OTC EYE DROPS [Concomitant]
     Indication: DRY EYE
     Dosage: UNK, PRN
     Route: 047

REACTIONS (8)
  - Wrong technique in drug usage process [Unknown]
  - Inappropriate schedule of drug administration [Unknown]
  - Skin discolouration [Not Recovered/Not Resolved]
  - Drug ineffective [Unknown]
  - Trichorrhexis [Not Recovered/Not Resolved]
  - Madarosis [Not Recovered/Not Resolved]
  - Eyelids pruritus [Recovered/Resolved]
  - Intraocular pressure decreased [Not Recovered/Not Resolved]
